FAERS Safety Report 24855775 (Version 1)
Quarter: 2025Q1

REPORT INFORMATION
  Report Type: Spontaneous
  Country: US (occurrence: None)
  Receive Date: 20250116
  Receipt Date: 20250116
  Transmission Date: 20250408
  Serious: Yes (Death)
  Sender: FDA-CTU
  Company Number: None

PATIENT
  Age: 80 Year
  Sex: Female

DRUGS (1)
  1. PIRFENIDONE [Suspect]
     Active Substance: PIRFENIDONE
     Indication: Idiopathic pulmonary fibrosis
     Dosage: 801MG QD ORAL
     Route: 048
     Dates: start: 20210804, end: 20250106

REACTIONS (3)
  - Respiratory failure [None]
  - Influenza virus test positive [None]
  - Hospice care [None]

NARRATIVE: CASE EVENT DATE: 20250106
